FAERS Safety Report 24230147 (Version 1)
Quarter: 2024Q3

REPORT INFORMATION
  Report Type: Report from Study
  Country: GB (occurrence: GB)
  Receive Date: 20240820
  Receipt Date: 20240820
  Transmission Date: 20241016
  Serious: Yes (Life-Threatening, Hospitalization, Other)
  Sender: ABBVIE
  Company Number: GB-ABBVIE-5883941

PATIENT
  Age: 51 Year
  Sex: Female
  Weight: 108 kg

DRUGS (25)
  1. SKYRIZI [Suspect]
     Active Substance: RISANKIZUMAB-RZAA
     Indication: Psoriasis
     Route: 058
     Dates: start: 20220919
  2. ACETAMINOPHEN [Concomitant]
     Active Substance: ACETAMINOPHEN
     Indication: Product used for unknown indication
     Dates: start: 20100101, end: 20230810
  3. GLICLAZIDE [Concomitant]
     Active Substance: GLICLAZIDE
     Indication: Product used for unknown indication
     Dates: start: 20240228
  4. METFORMIN [Concomitant]
     Active Substance: METFORMIN HYDROCHLORIDE
     Indication: Product used for unknown indication
     Dates: start: 20220107
  5. OMEPRAZOLE [Concomitant]
     Active Substance: OMEPRAZOLE
     Indication: Product used for unknown indication
     Dates: start: 20181031
  6. COVID-19 vaccine [Concomitant]
     Indication: COVID-19 immunisation
     Dosage: COVID-19 VACCINE (OXFORD/ASTRAZENECA)
     Dates: start: 20210428, end: 20210428
  7. COVID-19 vaccine [Concomitant]
     Indication: COVID-19 immunisation
     Dosage: COVID-19 VACCINE (OXFORD/ASTRAZENECA)
     Dates: start: 20210217, end: 20210217
  8. CHOLECALCIFEROL [Concomitant]
     Active Substance: CHOLECALCIFEROL
     Indication: Product used for unknown indication
     Dates: start: 20180420, end: 20230522
  9. CHLORHEXIDINE [Concomitant]
     Active Substance: CHLORHEXIDINE
     Indication: Product used for unknown indication
     Dates: start: 20191024, end: 20240726
  10. TRIMOVATE [Concomitant]
     Active Substance: CLOBETASONE BUTYRATE\NYSTATIN\OXYTETRACYCLINE CALCIUM
     Indication: Product used for unknown indication
     Dates: start: 20230201
  11. FLUCLOXACILLIN [Suspect]
     Active Substance: FLUCLOXACILLIN
     Indication: Product used for unknown indication
     Route: 065
     Dates: start: 20240108, end: 20240115
  12. FLUCLOXACILLIN [Suspect]
     Active Substance: FLUCLOXACILLIN
     Indication: Product used for unknown indication
     Route: 065
     Dates: start: 20240206, end: 20240213
  13. COVID-19 Vaccine [Concomitant]
     Indication: COVID-19 immunisation
     Dosage: (COMIRNATY OMICRON XBB, BIONTECH - PFIZER)
     Dates: start: 20221109, end: 20221109
  14. COVID-19 Vaccine [Concomitant]
     Indication: COVID-19 immunisation
     Dosage: (COMIRNATY OMICRON XBB, BIONTECH - PFIZER)
     Dates: start: 20230516, end: 20230516
  15. COCODAMOL [Concomitant]
     Active Substance: ACETAMINOPHEN\CODEINE PHOSPHATE
     Indication: Product used for unknown indication
     Dates: start: 20230811
  16. PFIZER-BIONTECH COVID-19 VACCINE [Concomitant]
     Active Substance: TOZINAMERAN
     Indication: Product used for unknown indication
     Dates: start: 20211118, end: 20211118
  17. COVID-19 Vaccine [Concomitant]
     Indication: COVID-19 immunisation
     Dosage: MODERNA SPIKEVAX )
     Dates: start: 20240522, end: 20240522
  18. COVID-19 Vaccine [Concomitant]
     Indication: COVID-19 immunisation
     Dosage: MODERNA SPIKEVAX )
     Dates: start: 20231021, end: 20231021
  19. SERTRALINE [Concomitant]
     Active Substance: SERTRALINE HYDROCHLORIDE
     Indication: Product used for unknown indication
     Dates: start: 20211215
  20. NAPROXEN [Concomitant]
     Active Substance: NAPROXEN
     Indication: Product used for unknown indication
     Dates: start: 20230201
  21. METHOTREXATE [Concomitant]
     Active Substance: METHOTREXATE
     Indication: Product used for unknown indication
     Dates: start: 20121219, end: 20230301
  22. DAPAGLIFLOZIN [Concomitant]
     Active Substance: DAPAGLIFLOZIN
     Indication: Product used for unknown indication
     Dates: start: 20220420
  23. BETAMETHASONE VALERATE\FUSIDIC ACID [Concomitant]
     Active Substance: BETAMETHASONE VALERATE\FUSIDIC ACID
     Indication: Product used for unknown indication
     Dates: start: 20230201
  24. FOLIC ACID [Concomitant]
     Active Substance: FOLIC ACID
     Indication: Product used for unknown indication
     Dates: start: 20121210
  25. MODERNA COVID-19 VACCINE [Concomitant]
     Active Substance: ELASOMERAN
     Indication: COVID-19 immunisation
     Dates: start: 20220426, end: 20220426

REACTIONS (1)
  - Anaphylactic shock [Recovered/Resolved]

NARRATIVE: CASE EVENT DATE: 20240207
